FAERS Safety Report 6003949-1 (Version None)
Quarter: 2008Q4

REPORT INFORMATION
  Report Type: 
  Country: None (occurrence: None)
  Receive Date: 20081216
  Receipt Date: 20081204
  Transmission Date: 20090506
  Serious: Yes (Other)
  Sender: FDA-Public Use
  Company Number: FR-PFIZER INC-2008153892

PATIENT

DRUGS (5)
  1. MARAVIROC [Suspect]
     Indication: HIV INFECTION
     Dosage: 150 MG, 2X/DAY
     Route: 048
     Dates: start: 20081117, end: 20081203
  2. DARUNAVIR [Interacting]
     Indication: HIV INFECTION
     Dosage: UNK
     Dates: start: 20080501
  3. ETRAVIRINE [Interacting]
     Indication: HIV INFECTION
     Dosage: UNK
     Dates: start: 20080501
  4. RALTEGRAVIR [Concomitant]
     Dosage: UNK
     Dates: start: 20080501
  5. RITONAVIR [Concomitant]
     Dosage: UNK
     Dates: start: 20080501

REACTIONS (3)
  - DRUG INTERACTION [None]
  - PRURITUS [None]
  - RASH MACULO-PAPULAR [None]
